FAERS Safety Report 18009110 (Version 1)
Quarter: 2020Q3

REPORT INFORMATION
  Report Type: Spontaneous
  Country: US (occurrence: US)
  Receive Date: 20200710
  Receipt Date: 20200710
  Transmission Date: 20201103
  Serious: Yes (Other)
  Sender: FDA-Public Use
  Company Number: US-SAOL THERAPEUTICS-2019SAO00453

PATIENT
  Sex: Female
  Weight: 86 kg

DRUGS (1)
  1. LIORESAL [Suspect]
     Active Substance: BACLOFEN
     Dosage: 153.75 ?G/DAY
     Route: 037

REACTIONS (3)
  - Implant site infection [Unknown]
  - Implant site erosion [Unknown]
  - Implant site discolouration [Unknown]

NARRATIVE: CASE EVENT DATE: 2019
